FAERS Safety Report 8594174 (Version 2)
Quarter: 2012Q4

REPORT INFORMATION
  Report Type: 
  Country: US (occurrence: None)
  Receive Date: 20120524
  Receipt Date: 20120919
  Transmission Date: 20130627
  Serious: Yes (Death, Hospitalization)
  Sender: FDA-Public Use
  Company Number: USA/USA/12/0024436

PATIENT
  Age: 65 Year
  Sex: Male

DRUGS (8)
  1. OLANZAPINE [Suspect]
     Indication: PSYCHOTIC DISORDER
     Dosage: 30 MG, 1 D, UNKNOWN 10 MG, 1 D, UNKNOWN
  2. OLANZAPINE [Suspect]
     Indication: AGGRESSION
     Dosage: 30 MG, 1 D, UNKNOWN 10 MG, 1 D, UNKNOWN
  3. OLANZAPINE [Suspect]
     Indication: RESTLESSNESS
     Dosage: 30 MG, 1 D, UNKNOWN 10 MG, 1 D, UNKNOWN
  4. OLANZAPINE [Suspect]
     Indication: PSYCHOTIC DISORDER
  5. OLANZAPINE [Suspect]
     Indication: AGGRESSION
  6. OLANZAPINE [Suspect]
     Indication: RESTLESSNESS
  7. CLOZAPINE [Suspect]
     Indication: SCHIZOPHRENIA
     Dosage: See image.
  8. DOCUSATE SODIUM [Concomitant]

REACTIONS (11)
  - Psychotic behaviour [None]
  - Ileus paralytic [None]
  - Diverticulum [None]
  - Condition aggravated [None]
  - Disease complication [None]
  - Hypotension [None]
  - Lung infiltration [None]
  - Aspiration [None]
  - Drug ineffective [None]
  - Product quality issue [None]
  - Drug interaction [None]
